FAERS Safety Report 7397402-0 (Version None)
Quarter: 2011Q2

REPORT INFORMATION
  Report Type: 
  Country: None (occurrence: None)
  Receive Date: 20110406
  Receipt Date: 20110330
  Transmission Date: 20111010
  Serious: Yes (Life-Threatening)
  Sender: FDA-Public Use
  Company Number: US-GENZYME-FABR-1001872

PATIENT

DRUGS (9)
  1. ASPIRIN [Concomitant]
     Indication: PRODUCT USED FOR UNKNOWN INDICATION
  2. FABRAZYME [Suspect]
     Dosage: UNK
     Route: 042
     Dates: start: 20110304
  3. FABRAZYME [Suspect]
     Indication: FABRY'S DISEASE
     Dosage: 60 MG, UNK
     Route: 042
     Dates: start: 20110318
  4. FABRAZYME [Suspect]
     Dosage: 70 MG, Q2W
     Route: 042
     Dates: start: 20080101
  5. LEXAPRO [Concomitant]
     Indication: PRODUCT USED FOR UNKNOWN INDICATION
  6. PROGRAF [Concomitant]
     Indication: RENAL TRANSPLANT
  7. CELLCEPT [Concomitant]
     Indication: BLOOD POTASSIUM
  8. FABRAZYME [Suspect]
     Dosage: UNK
     Dates: start: 20110201
  9. COUMADIN [Concomitant]
     Indication: HEART VALVE REPLACEMENT

REACTIONS (3)
  - URTICARIA [None]
  - ANAPHYLACTOID REACTION [None]
  - HYPOTENSION [None]
